FAERS Safety Report 6956643 (Version 2)
Quarter: 2013Q4

REPORT INFORMATION
  Report Type: Spontaneous
  Country: US (occurrence: None)
  Receive Date: 20090323
  Receipt Date: 20131024
  Transmission Date: 20140711
  Serious: Yes (Other)
  Sender: FDA-Public Use
  Company Number: 2009S1002459

PATIENT
  Age: 64 Year
  Sex: Female
  Weight: 87.54 kg

DRUGS (8)
  1. SODIUM PHOSPHATE, DIBASIC [Suspect]
     Indication: COLONOSCOPY
     Dosage: 90ML, 45ML AT 2:00PM AND 45 ML
     Route: 048
     Dates: start: 20080207, end: 20080207
  2. GOLYTELY [Suspect]
     Indication: COLONOSCOPY
     Route: 048
     Dates: start: 200802, end: 200802
  3. BISACODYL [Suspect]
     Indication: COLONOSCOPY
     Dates: start: 200802, end: 200802
  4. VYTORIN (SIMVASTATIN, EZETIMIBE) [Concomitant]
  5. BENICAR (OLMESARTAN MEDOXOMIL) [Concomitant]
  6. EVISTA (RALOXIFENE HYDROCHLORIDE) [Concomitant]
  7. OSCAL D (COLECALCIFEROL, CALCIUM CARBONATE) [Concomitant]
  8. ALEVE (NAPROXEN SODIUM) [Concomitant]

REACTIONS (3)
  - Renal failure [None]
  - Hyperphosphataemia [None]
  - Toxicity to various agents [None]
